FAERS Safety Report 14255733 (Version 8)
Quarter: 2018Q1

REPORT INFORMATION
  Report Type: Report from Study
  Country: US (occurrence: US)
  Receive Date: 20171206
  Receipt Date: 20180222
  Transmission Date: 20180508
  Serious: Yes (Hospitalization, Other)
  Sender: FDA-Public Use
  Company Number: US-GILEAD-2017-0308588

PATIENT
  Age: 57 Year
  Sex: Male

DRUGS (9)
  1. ADCIRCA [Suspect]
     Active Substance: TADALAFIL
     Indication: PULMONARY ARTERIAL HYPERTENSION
     Dosage: 40 MG, QD
     Route: 065
     Dates: start: 201303
  2. REMODULIN [Suspect]
     Active Substance: TREPROSTINIL
     Dosage: 0.036ML/HRUNK
     Route: 065
  3. ADCIRCA [Suspect]
     Active Substance: TADALAFIL
     Dosage: 20 MG, BID
     Route: 065
  4. REMODULIN [Suspect]
     Active Substance: TREPROSTINIL
     Dosage: 52 NG, UNK
     Route: 065
     Dates: start: 20171222
  5. AMBRISENTAN [Suspect]
     Active Substance: AMBRISENTAN
     Indication: PULMONARY ARTERIAL HYPERTENSION
     Dosage: 10 MG, QD
     Route: 065
     Dates: start: 20130313
  6. REMODULIN [Suspect]
     Active Substance: TREPROSTINIL
     Indication: PULMONARY ARTERIAL HYPERTENSION
     Dosage: 27 NG, UNK
     Route: 058
     Dates: start: 201710
  7. REMODULIN [Suspect]
     Active Substance: TREPROSTINIL
     Dosage: 5 MG, UNK
     Route: 065
  8. REMODULIN [Suspect]
     Active Substance: TREPROSTINIL
     Dosage: 0.040ML/HRUNK
     Route: 065
     Dates: start: 20171225
  9. REMODULIN [Suspect]
     Active Substance: TREPROSTINIL
     Dosage: 5 MG, UNK
     Route: 065

REACTIONS (10)
  - Syncope [Recovered/Resolved]
  - Loss of consciousness [Unknown]
  - Pain [Not Recovered/Not Resolved]
  - Pain in extremity [Unknown]
  - Pain in jaw [Unknown]
  - Diarrhoea [Unknown]
  - Headache [Recovering/Resolving]
  - Dyspnoea [Unknown]
  - Abdominal discomfort [Unknown]
  - Vomiting [Unknown]

NARRATIVE: CASE EVENT DATE: 20171129
